FAERS Safety Report 8135033-5 (Version None)
Quarter: 2012Q1

REPORT INFORMATION
  Report Type: 
  Country: None (occurrence: None)
  Receive Date: 20120103
  Receipt Date: 20111113
  Transmission Date: 20120608
  Serious: No
  Sender: FDA-Public Use
  Company Number: AE-2011-003427

PATIENT
  Age: 58 Year
  Sex: Female
  Weight: 57.6068 kg

DRUGS (3)
  1. PEGASYS [Concomitant]
  2. RIBASPHERE [Concomitant]
  3. INCIVEK [Suspect]
     Dosage: 2250 MG (750 MG, 3 IN 1 D), ORAL
     Route: 048
     Dates: start: 20110710, end: 20111030

REACTIONS (8)
  - PLATELET COUNT DECREASED [None]
  - MEMORY IMPAIRMENT [None]
  - IMPAIRED DRIVING ABILITY [None]
  - ANAEMIA [None]
  - ANXIETY [None]
  - INSOMNIA [None]
  - DYSGRAPHIA [None]
  - AGGRESSION [None]
